FAERS Safety Report 9503997 (Version 1)
Quarter: 2013Q1

REPORT INFORMATION
  Report Type: Spontaneous
  Country: US (occurrence: None)
  Receive Date: 20130225
  Receipt Date: 20130225
  Transmission Date: 20140127
  Serious: Yes (Other)
  Sender: FDA-Public Use
  Company Number: 365917

PATIENT
  Sex: Female

DRUGS (1)
  1. VICTOZA (LIRAGLUTIDE) [Suspect]
     Indication: DIABETES MELLITUS
     Route: 058
     Dates: start: 20121123, end: 20121126

REACTIONS (2)
  - Flushing [None]
  - Nausea [None]
